FAERS Safety Report 21754439 (Version 1)
Quarter: 2022Q4

REPORT INFORMATION
  Report Type: Spontaneous
  Country: DE (occurrence: DE)
  Receive Date: 20221220
  Receipt Date: 20221220
  Transmission Date: 20230113
  Serious: Yes (Other)
  Sender: FDA-Public Use
  Company Number: None

PATIENT
  Age: 81 Year
  Sex: Female
  Weight: 40 kg

DRUGS (1)
  1. PAXLOVID [Suspect]
     Active Substance: NIRMATRELVIR\RITONAVIR
     Indication: COVID-19 treatment
     Dosage: [PF-07321332 300 MG]/[RITONAVIR 100 MG]; 2X/DAY; 2ND CYCLE
     Route: 048
     Dates: start: 20221110, end: 20221117

REACTIONS (19)
  - Blood pressure increased [Not Recovered/Not Resolved]
  - Dysgeusia [Not Recovered/Not Resolved]
  - Pruritus [Not Recovered/Not Resolved]
  - Diarrhoea [Not Recovered/Not Resolved]
  - COVID-19 [Not Recovered/Not Resolved]
  - Disease recurrence [Not Recovered/Not Resolved]
  - Oropharyngeal discomfort [Not Recovered/Not Resolved]
  - Asthenia [Not Recovered/Not Resolved]
  - Nausea [Not Recovered/Not Resolved]
  - Retching [Not Recovered/Not Resolved]
  - Back pain [Not Recovered/Not Resolved]
  - Swelling of eyelid [Not Recovered/Not Resolved]
  - Faeces pale [Not Recovered/Not Resolved]
  - Dizziness [Not Recovered/Not Resolved]
  - Myalgia [Not Recovered/Not Resolved]
  - Pain in extremity [Not Recovered/Not Resolved]
  - Eye inflammation [Not Recovered/Not Resolved]
  - Insomnia [Not Recovered/Not Resolved]
  - Product use issue [Unknown]

NARRATIVE: CASE EVENT DATE: 20221101
